FAERS Safety Report 18975755 (Version 1)
Quarter: 2021Q1

REPORT INFORMATION
  Report Type: Spontaneous
  Country: US (occurrence: US)
  Receive Date: 20210306
  Receipt Date: 20210306
  Transmission Date: 20210420
  Serious: Yes (Hospitalization, Other)
  Sender: FDA-Public Use
  Company Number: US-ASTRAZENECA-2021A093359

PATIENT
  Age: 25458 Day
  Sex: Male

DRUGS (66)
  1. PRILOSEC OTC [Suspect]
     Active Substance: OMEPRAZOLE MAGNESIUM
     Indication: GASTROOESOPHAGEAL REFLUX DISEASE
     Route: 048
     Dates: start: 201105, end: 201505
  2. LOSARTAN. [Concomitant]
     Active Substance: LOSARTAN
     Indication: HYPERTENSION
  3. CIPROFLOXACIN. [Concomitant]
     Active Substance: CIPROFLOXACIN
  4. NOVOLOG [Concomitant]
     Active Substance: INSULIN ASPART
  5. LISINOPRIL/HCTZ [Concomitant]
     Active Substance: HYDROCHLOROTHIAZIDE\LISINOPRIL
  6. NAPROXEN. [Concomitant]
     Active Substance: NAPROXEN
  7. DESONIDE. [Concomitant]
     Active Substance: DESONIDE
  8. VITAMIN B1 [Concomitant]
     Active Substance: THIAMINE HYDROCHLORIDE
  9. BENZONATATE. [Concomitant]
     Active Substance: BENZONATATE
  10. PLAVIX [Concomitant]
     Active Substance: CLOPIDOGREL BISULFATE
  11. LEVAQUIN [Concomitant]
     Active Substance: LEVOFLOXACIN
  12. ENALAPRIL [Concomitant]
     Active Substance: ENALAPRIL
  13. GENTAMICIN. [Concomitant]
     Active Substance: GENTAMICIN
  14. AMLODIPINE BESYLATE. [Concomitant]
     Active Substance: AMLODIPINE BESYLATE
  15. KLOR?CON [Concomitant]
     Active Substance: POTASSIUM CHLORIDE
  16. TRIAMCINOLONE [Concomitant]
     Active Substance: TRIAMCINOLONE
  17. OFLOXACIN. [Concomitant]
     Active Substance: OFLOXACIN
  18. LISINOPRIL. [Concomitant]
     Active Substance: LISINOPRIL
     Indication: HYPERTENSION
     Dates: start: 201812
  19. PREDNISOLONE. [Concomitant]
     Active Substance: PREDNISOLONE
  20. METRONIDAZOLE. [Concomitant]
     Active Substance: METRONIDAZOLE
  21. OXYCODONE [Concomitant]
     Active Substance: OXYCODONE
  22. VERAPAMIL [Concomitant]
     Active Substance: VERAPAMIL HYDROCHLORIDE
  23. LEVITRA [Concomitant]
     Active Substance: VARDENAFIL HYDROCHLORIDE
  24. AZITHROMYCIN ANHYDROUS. [Concomitant]
     Active Substance: AZITHROMYCIN ANHYDROUS
  25. AZITHROMYCIN ANHYDROUS. [Concomitant]
     Active Substance: AZITHROMYCIN ANHYDROUS
  26. COZAAR [Concomitant]
     Active Substance: LOSARTAN POTASSIUM
  27. VIGAMOX [Concomitant]
     Active Substance: MOXIFLOXACIN HYDROCHLORIDE
  28. PANTOPRAZOLE [Suspect]
     Active Substance: PANTOPRAZOLE
     Indication: GASTROOESOPHAGEAL REFLUX DISEASE
     Route: 065
     Dates: start: 201301, end: 201306
  29. SIMVASTATIN. [Concomitant]
     Active Substance: SIMVASTATIN
     Indication: BLOOD CHOLESTEROL INCREASED
     Dates: start: 2011, end: 2014
  30. ASPIRIN. [Concomitant]
     Active Substance: ASPIRIN
     Indication: ANALGESIC THERAPY
     Dates: start: 2009
  31. DOXYCYCLINE HYCLATE. [Concomitant]
     Active Substance: DOXYCYCLINE HYCLATE
  32. TAMSULOSIN [Concomitant]
     Active Substance: TAMSULOSIN
  33. KETOCONAZOLE. [Concomitant]
     Active Substance: KETOCONAZOLE
  34. CIALIS [Concomitant]
     Active Substance: TADALAFIL
  35. VITAMIN B1 [Concomitant]
     Active Substance: THIAMINE HYDROCHLORIDE
  36. ENALAPRIL [Concomitant]
     Active Substance: ENALAPRIL
  37. METOPROLOL. [Concomitant]
     Active Substance: METOPROLOL
     Indication: HYPERTENSION
  38. RANITIDINE. [Concomitant]
     Active Substance: RANITIDINE
     Dates: start: 2013
  39. TRIAMCINOLONE ACETONIDE. [Concomitant]
     Active Substance: TRIAMCINOLONE ACETONIDE
  40. VIAGRA [Concomitant]
     Active Substance: SILDENAFIL CITRATE
  41. PLAVIX [Concomitant]
     Active Substance: CLOPIDOGREL BISULFATE
  42. COZAAR [Concomitant]
     Active Substance: LOSARTAN POTASSIUM
  43. VIGAMOX [Concomitant]
     Active Substance: MOXIFLOXACIN HYDROCHLORIDE
  44. TOBRADEX [Concomitant]
     Active Substance: DEXAMETHASONE\TOBRAMYCIN
  45. LOSARTAN. [Concomitant]
     Active Substance: LOSARTAN
     Indication: HYPERTENSION
     Dates: start: 2012, end: 2015
  46. NITROSTAT [Concomitant]
     Active Substance: NITROGLYCERIN
  47. FLUTICASONE PROPIONATE. [Concomitant]
     Active Substance: FLUTICASONE PROPIONATE
  48. SPIRIVA [Concomitant]
     Active Substance: TIOTROPIUM BROMIDE MONOHYDRATE
  49. BENZONATATE. [Concomitant]
     Active Substance: BENZONATATE
  50. OMEPRAZOLE. [Suspect]
     Active Substance: OMEPRAZOLE
     Indication: GASTROOESOPHAGEAL REFLUX DISEASE
     Route: 065
     Dates: start: 20141201, end: 20150502
  51. CLOPIDOGREL [Concomitant]
     Active Substance: CLOPIDOGREL BISULFATE
     Indication: ANGINA PECTORIS
     Dates: start: 2009, end: 2014
  52. NIZATIDINE. [Concomitant]
     Active Substance: NIZATIDINE
     Dates: start: 201510
  53. PEPCID [Concomitant]
     Active Substance: FAMOTIDINE
     Dosage: OTC
     Dates: start: 2000, end: 2011
  54. ROLAIDS [Concomitant]
     Active Substance: CALCIUM CARBONATE\MAGNESIUM HYDROXIDE
     Dates: start: 2008, end: 2009
  55. SUCRALFATE. [Concomitant]
     Active Substance: SUCRALFATE
  56. SIMVASTATIN. [Concomitant]
     Active Substance: SIMVASTATIN
  57. METOCLOPRAMIDE. [Concomitant]
     Active Substance: METOCLOPRAMIDE
  58. NIZATIDINE. [Concomitant]
     Active Substance: NIZATIDINE
  59. ATENOLOL. [Concomitant]
     Active Substance: ATENOLOL
  60. TRIAMCINOLONE [Concomitant]
     Active Substance: TRIAMCINOLONE
  61. AVODART [Concomitant]
     Active Substance: DUTASTERIDE
  62. AVODART [Concomitant]
     Active Substance: DUTASTERIDE
  63. TOBRADEX [Concomitant]
     Active Substance: DEXAMETHASONE\TOBRAMYCIN
  64. ERYTHROMYCIN. [Concomitant]
     Active Substance: ERYTHROMYCIN
  65. LEVAQUIN [Concomitant]
     Active Substance: LEVOFLOXACIN
  66. OFLOXACIN. [Concomitant]
     Active Substance: OFLOXACIN

REACTIONS (6)
  - Tubulointerstitial nephritis [Unknown]
  - Chronic kidney disease [Not Recovered/Not Resolved]
  - Acute kidney injury [Not Recovered/Not Resolved]
  - Nephrogenic anaemia [Unknown]
  - Renal failure [Unknown]
  - Chronic kidney disease-mineral and bone disorder [Unknown]

NARRATIVE: CASE EVENT DATE: 20090829
